FAERS Safety Report 15597084 (Version 1)
Quarter: 2018Q4

REPORT INFORMATION
  Report Type: Spontaneous
  Country: IT (occurrence: IT)
  Receive Date: 20181108
  Receipt Date: 20181108
  Transmission Date: 20190205
  Serious: Yes (Other)
  Sender: FDA-Public Use
  Company Number: IT-AUROBINDO-AUR-APL-2018-054253

PATIENT
  Age: 81 Year
  Sex: Female

DRUGS (1)
  1. RAMIPRIL TABLET [Suspect]
     Active Substance: RAMIPRIL
     Indication: PRODUCT USED FOR UNKNOWN INDICATION
     Dosage: 5 MILLIGRAM, DAILY (ONE TABLET IN MORNING)
     Route: 048

REACTIONS (4)
  - Cough [Unknown]
  - Peripheral swelling [Not Recovered/Not Resolved]
  - Dysentery [Unknown]
  - Asthenia [Unknown]
